APPROVED DRUG PRODUCT: CIPROFLOXACIN IN DEXTROSE 5% IN PLASTIC CONTAINER
Active Ingredient: CIPROFLOXACIN
Strength: 400MG/200ML
Dosage Form/Route: INJECTABLE;INJECTION
Application: A077753 | Product #002 | TE Code: AP
Applicant: HOSPIRA INC
Approved: Mar 18, 2008 | RLD: No | RS: Yes | Type: RX